FAERS Safety Report 4962092-0 (Version None)
Quarter: 2006Q2

REPORT INFORMATION
  Report Type: 
  Country: None (occurrence: None)
  Receive Date: 20060404
  Receipt Date: 20060301
  Transmission Date: 20061013
  Serious: Yes (Other)
  Sender: FDA-Public Use
  Company Number: US-MERCK-0603USA00880

PATIENT
  Age: 69 Year
  Sex: Male
  Weight: 95 kg

DRUGS (24)
  1. VIOXX [Suspect]
     Indication: GOUT
     Route: 048
     Dates: start: 20020501
  2. VIOXX [Suspect]
     Route: 048
     Dates: start: 20020801
  3. VIOXX [Suspect]
     Route: 048
     Dates: start: 20040510
  4. VIOXX [Suspect]
     Route: 048
     Dates: end: 20041101
  5. VIOXX [Suspect]
     Indication: CARPAL TUNNEL SYNDROME
     Route: 048
     Dates: start: 20020501
  6. VIOXX [Suspect]
     Route: 048
     Dates: start: 20020801
  7. VIOXX [Suspect]
     Route: 048
     Dates: start: 20040510
  8. VIOXX [Suspect]
     Route: 048
     Dates: end: 20041101
  9. CAPTOPRIL [Concomitant]
     Route: 065
  10. DIPHEN-ATROP [Concomitant]
     Route: 065
     Dates: start: 20040226, end: 20040313
  11. FUROSEMIDE [Concomitant]
     Route: 065
  12. ANALPRAM-HC CREAM [Concomitant]
     Route: 065
     Dates: start: 20040401, end: 20040410
  13. ZOCOR [Concomitant]
     Route: 048
  14. MECLIZINE [Concomitant]
     Route: 065
  15. DONNATAL [Concomitant]
     Route: 065
  16. PLAVIX [Concomitant]
     Route: 065
  17. CAPOTEN [Concomitant]
     Route: 065
  18. FIORICET TABLETS [Concomitant]
     Route: 065
  19. DIOVAN [Concomitant]
     Route: 065
  20. NORVASC [Concomitant]
     Route: 065
  21. TOPAMAX [Concomitant]
     Route: 065
  22. FOLIC ACID [Concomitant]
     Route: 065
  23. CELEBREX [Concomitant]
     Indication: ARTHRITIS
     Route: 065
     Dates: start: 20041101
  24. CELEBREX [Concomitant]
     Indication: BACK PAIN
     Route: 065
     Dates: start: 20041101

REACTIONS (7)
  - ARTHRALGIA [None]
  - BACK PAIN [None]
  - CARPAL TUNNEL SYNDROME [None]
  - CEREBROVASCULAR ACCIDENT [None]
  - DIARRHOEA [None]
  - HEADACHE [None]
  - VASCULAR OCCLUSION [None]
